FAERS Safety Report 20501751 (Version 1)
Quarter: 2022Q1

REPORT INFORMATION
  Report Type: Report from Study
  Country: US (occurrence: None)
  Receive Date: 20220222
  Receipt Date: 20220222
  Transmission Date: 20220423
  Serious: Yes (Hospitalization, Other)
  Sender: FDA-Public Use
  Company Number: US-Merck KGaA-E2B_80001612

PATIENT
  Sex: Female

DRUGS (1)
  1. REBIF [Suspect]
     Active Substance: INTERFERON BETA-1A
     Indication: Product used for unknown indication
     Route: 058
     Dates: start: 20060906

REACTIONS (9)
  - Staphylococcal infection [Unknown]
  - Injection site infection [Unknown]
  - Neuropathy peripheral [Unknown]
  - Feeling cold [Unknown]
  - Injection site mass [Unknown]
  - Injection site erythema [Unknown]
  - Fatigue [Unknown]
  - Restless legs syndrome [Unknown]
  - Product storage error [Unknown]
